FAERS Safety Report 4856062-0 (Version None)
Quarter: 2005Q4

REPORT INFORMATION
  Report Type: 
  Country: None (occurrence: None)
  Receive Date: 20051216
  Receipt Date: 20051207
  Transmission Date: 20060501
  Serious: Yes (Hospitalization, Other)
  Sender: FDA-Public Use
  Company Number: JP-ABBOTT-05P-087-0319142-00

PATIENT
  Age: 48 Year
  Sex: Male
  Weight: 74 kg

DRUGS (14)
  1. CLARITHROMYCIN [Suspect]
     Indication: BRONCHITIS ACUTE
     Route: 048
     Dates: start: 20051004, end: 20051010
  2. CLARITHROMYCIN [Suspect]
     Route: 048
     Dates: start: 20050920, end: 20050926
  3. PL [Suspect]
     Indication: BRONCHITIS ACUTE
     Route: 048
     Dates: start: 20051004, end: 20051010
  4. PL [Suspect]
     Route: 048
     Dates: start: 20050920, end: 20050926
  5. CLOPERASTINE FENDIZOATE [Suspect]
     Indication: BRONCHITIS ACUTE
     Route: 048
     Dates: start: 20051004, end: 20051010
  6. CLOPERASTINE FENDIZOATE [Suspect]
     Route: 048
     Dates: start: 20050920, end: 20050926
  7. LEVOFLOXACIN [Suspect]
     Indication: BRONCHITIS ACUTE
     Route: 048
     Dates: start: 20051011, end: 20051017
  8. LEVOFLOXACIN [Suspect]
     Route: 048
     Dates: start: 20050927, end: 20051003
  9. CARBOCISTEINE [Suspect]
     Indication: BRONCHITIS ACUTE
     Route: 048
     Dates: start: 20051011, end: 20051017
  10. CARBOCISTEINE [Suspect]
     Route: 048
     Dates: start: 20050927, end: 20051003
  11. BROMHEXINE HYDROCHLORIDE [Suspect]
     Indication: BRONCHITIS ACUTE
     Route: 048
     Dates: start: 20051011, end: 20051017
  12. BROMHEXINE HYDROCHLORIDE [Suspect]
     Route: 048
     Dates: start: 20050927, end: 20051003
  13. SEKICODE [Suspect]
     Indication: BRONCHITIS ACUTE
     Route: 048
     Dates: start: 20051011, end: 20051017
  14. SEKICODE [Suspect]
     Route: 048
     Dates: start: 20050927, end: 20051003

REACTIONS (3)
  - DRUG INEFFECTIVE [None]
  - INTERSTITIAL LUNG DISEASE [None]
  - RESPIRATORY FAILURE [None]
